FAERS Safety Report 6683430-7 (Version None)
Quarter: 2010Q2

REPORT INFORMATION
  Report Type: 
  Country: None (occurrence: None)
  Receive Date: 20100415
  Receipt Date: 20100414
  Transmission Date: 20101027
  Serious: Yes (Other)
  Sender: FDA-Public Use
  Company Number: CA-ROXANE LABORATORIES, INC.-2010-RO-00415RO

PATIENT
  Age: 62 Year
  Sex: Male

DRUGS (3)
  1. MORPHINE [Suspect]
     Indication: PAIN
     Route: 008
  2. FENTANYL [Suspect]
     Indication: PAIN
     Route: 008
  3. BUPIVACAINE HCL [Suspect]
     Indication: PAIN
     Route: 008

REACTIONS (2)
  - DRUG DISPENSING ERROR [None]
  - RESPIRATORY DISTRESS [None]
